FAERS Safety Report 10936281 (Version 1)
Quarter: 2015Q1

REPORT INFORMATION
  Report Type: Spontaneous
  Country: US (occurrence: None)
  Receive Date: 20150319
  Receipt Date: 20150319
  Transmission Date: 20150721
  Serious: No
  Sender: FDA-Public Use
  Company Number: None

PATIENT
  Sex: Male
  Weight: 46.27 kg

DRUGS (4)
  1. DEXMETHYLPHENIDATE HCL [Suspect]
     Active Substance: DEXMETHYLPHENIDATE HYDROCHLORIDE
     Indication: OPPOSITIONAL DEFIANT DISORDER
     Dosage: DAILY AM, DAILY AFTER LUNCH
     Route: 048
     Dates: start: 20141230, end: 20150205
  2. DEXMETHYLPHENIDATE HCL [Suspect]
     Active Substance: DEXMETHYLPHENIDATE HYDROCHLORIDE
     Indication: ATTENTION DEFICIT/HYPERACTIVITY DISORDER
     Dosage: DAILY AM, DAILY AFTER LUNCH
     Route: 048
     Dates: start: 20141230, end: 20150205
  3. CLONIDINE. [Concomitant]
     Active Substance: CLONIDINE
  4. INHAIR ER [Concomitant]

REACTIONS (6)
  - Disease progression [None]
  - Abnormal behaviour [None]
  - Oppositional defiant disorder [None]
  - Insomnia [None]
  - Product substitution issue [None]
  - Disturbance in attention [None]
